FAERS Safety Report 17882059 (Version 2)
Quarter: 2020Q3

REPORT INFORMATION
  Report Type: Report from Study
  Country: None (occurrence: US)
  Receive Date: 20200610
  Receipt Date: 20200724
  Transmission Date: 20201103
  Serious: Yes (Hospitalization, Other)
  Sender: FDA-Public Use
  Company Number: US-ABBVIE-20K-163-3430817-00

PATIENT
  Age: 27 Year
  Sex: Female
  Weight: 48.58 kg

DRUGS (3)
  1. MULTIVITAMINS [Concomitant]
     Active Substance: VITAMINS
     Indication: VITAMIN SUPPLEMENTATION
  2. HUMIRA [Suspect]
     Active Substance: ADALIMUMAB
     Indication: CROHN^S DISEASE
     Route: 058
     Dates: start: 201803, end: 20200513
  3. IMURAN [Concomitant]
     Active Substance: AZATHIOPRINE
     Indication: CROHN^S DISEASE

REACTIONS (10)
  - Loss of consciousness [Recovered/Resolved]
  - Intestinal obstruction [Recovered/Resolved]
  - Eczema [Recovered/Resolved]
  - Stenosis [Recovered/Resolved]
  - Abdominal pain [Recovered/Resolved]
  - Intestinal resection [Unknown]
  - Hospitalisation [Unknown]
  - Fistula [Recovered/Resolved]
  - Colectomy [Unknown]
  - Drug ineffective [Not Recovered/Not Resolved]

NARRATIVE: CASE EVENT DATE: 201803
